FAERS Safety Report 22294227 (Version 1)
Quarter: 2023Q2

REPORT INFORMATION
  Report Type: Spontaneous
  Country: GB (occurrence: GB)
  Receive Date: 20230508
  Receipt Date: 20230508
  Transmission Date: 20230721
  Serious: Yes (Other)
  Sender: FDA-Public Use
  Company Number: GB-AMRYT PHARMACEUTICALS DAC-AEGR006493

PATIENT

DRUGS (13)
  1. LOMITAPIDE [Suspect]
     Active Substance: LOMITAPIDE
     Indication: Type IIa hyperlipidaemia
     Dosage: 5 MILLIGRAM
     Dates: start: 20200505
  2. LOMITAPIDE [Suspect]
     Active Substance: LOMITAPIDE
     Dosage: 10 MILLIGRAM
     Dates: start: 202011
  3. LOMITAPIDE [Suspect]
     Active Substance: LOMITAPIDE
     Dosage: 15 MILLIGRAM
     Dates: start: 202110
  4. LOMITAPIDE [Suspect]
     Active Substance: LOMITAPIDE
     Dosage: 20 MILLIGRAM
     Dates: start: 202112
  5. LOMITAPIDE [Suspect]
     Active Substance: LOMITAPIDE
     Dosage: 25 MILLIGRAM
     Dates: start: 202208
  6. LOMITAPIDE [Suspect]
     Active Substance: LOMITAPIDE
     Dosage: 30 MILLIGRAM
     Dates: start: 202301
  7. ATORVASTATIN [Concomitant]
     Active Substance: ATORVASTATIN
     Indication: Hyperlipidaemia
     Dosage: UNK
  8. ATORVASTATIN [Concomitant]
     Active Substance: ATORVASTATIN
     Dosage: 80 MILLIGRAM, QD
     Dates: start: 2016
  9. EZETIMIBE [Concomitant]
     Active Substance: EZETIMIBE
     Indication: Hyperlipidaemia
     Dosage: UNK
  10. EZETIMIBE [Concomitant]
     Active Substance: EZETIMIBE
     Dosage: 10 MILLIGRAM, QD
     Dates: start: 2016
  11. COLESEVELAM [Concomitant]
     Active Substance: COLESEVELAM
     Indication: Hyperlipidaemia
     Dosage: 3-5 CAPSULES, QD
     Dates: start: 2016
  12. EVOLOCUMAB [Concomitant]
     Active Substance: EVOLOCUMAB
     Indication: Hyperlipidaemia
     Dosage: 420 MILLIGRAM, MONTHLY
     Dates: start: 201708
  13. EVOLOCUMAB [Concomitant]
     Active Substance: EVOLOCUMAB
     Dosage: 420 MILLIGRAM, 2 WEEKLY
     Dates: start: 201709

REACTIONS (6)
  - Aortic valve incompetence [Unknown]
  - Aortic valve thickening [Unknown]
  - Mitral valve incompetence [Unknown]
  - Tricuspid valve incompetence [Unknown]
  - Aortic arteriosclerosis [Unknown]
  - Weight decreased [Unknown]
